FAERS Safety Report 14895937 (Version 2)
Quarter: 2018Q2

REPORT INFORMATION
  Report Type: Spontaneous
  Country: US (occurrence: US)
  Receive Date: 20180515
  Receipt Date: 20180615
  Transmission Date: 20180711
  Serious: Yes (Hospitalization, Other)
  Sender: FDA-Public Use
  Company Number: US-AUROBINDO-AUR-APL-2018-025541

PATIENT
  Age: 60 Year
  Sex: Female

DRUGS (15)
  1. LISINOPRIL. [Suspect]
     Active Substance: LISINOPRIL
     Indication: PRODUCT USED FOR UNKNOWN INDICATION
     Dosage: ()
     Route: 065
  2. METHOTREXATE. [Interacting]
     Active Substance: METHOTREXATE
     Dosage: HDMTX ()
     Route: 041
  3. METOPROLOL. [Concomitant]
     Active Substance: METOPROLOL
     Indication: PRODUCT USED FOR UNKNOWN INDICATION
     Dosage: ()
  4. FOLINIC ACID [Concomitant]
     Active Substance: LEUCOVORIN
     Indication: PRODUCT USED FOR UNKNOWN INDICATION
     Route: 048
  5. METHOTREXATE. [Interacting]
     Active Substance: METHOTREXATE
     Indication: B-CELL TYPE ACUTE LEUKAEMIA
     Dosage: HDMTX ()
     Route: 041
  6. VORICONAZOLE. [Concomitant]
     Active Substance: VORICONAZOLE
     Dosage: ()
  7. LORAZEPAM. [Concomitant]
     Active Substance: LORAZEPAM
     Indication: PRODUCT USED FOR UNKNOWN INDICATION
     Dosage: ()
  8. FOLINIC ACID [Concomitant]
     Active Substance: LEUCOVORIN
     Route: 042
  9. VORICONAZOLE. [Concomitant]
     Active Substance: VORICONAZOLE
     Indication: PRODUCT USED FOR UNKNOWN INDICATION
     Dosage: ()
  10. AMIODARONE [Concomitant]
     Active Substance: AMIODARONE
     Indication: PRODUCT USED FOR UNKNOWN INDICATION
     Dosage: ()
  11. LISINOPRIL. [Interacting]
     Active Substance: LISINOPRIL
     Dosage: ()
  12. METHOTREXATE. [Interacting]
     Active Substance: METHOTREXATE
     Dosage: INFUSED OVER 24 H ; CYCLICAL
     Route: 041
  13. FOLINIC ACID [Concomitant]
     Active Substance: LEUCOVORIN
     Route: 042
  14. METHOTREXATE. [Interacting]
     Active Substance: METHOTREXATE
     Dosage: INFUSED OVER 24 H ; CYCLICAL
     Route: 041
  15. CYTARABINE. [Concomitant]
     Active Substance: CYTARABINE
     Indication: B-CELL TYPE ACUTE LEUKAEMIA
     Dosage: INFUSED OVER 2 H EVERY 12 H FOR FOUR DOSES ; CYCLICAL
     Route: 041

REACTIONS (7)
  - Pancytopenia [Recovered/Resolved]
  - Nephropathy [Recovered/Resolved]
  - Acute kidney injury [Recovered/Resolved]
  - Toxicity to various agents [Recovered/Resolved]
  - Drug interaction [Recovered/Resolved]
  - Mucosal inflammation [Recovered/Resolved]
  - Drug clearance decreased [Recovered/Resolved]
